FAERS Safety Report 5428318-4 (Version None)
Quarter: 2007Q3

REPORT INFORMATION
  Report Type: 
  Country: None (occurrence: None)
  Receive Date: 20070823
  Receipt Date: 20070815
  Transmission Date: 20080115
  Serious: Yes (Hospitalization)
  Sender: FDA-Public Use
  Company Number: S07-GER-00169-01

PATIENT
  Sex: Female

DRUGS (6)
  1. ESCITALOPRAM OXALATE [Suspect]
     Dosage: 10 MG QD PO
     Route: 048
     Dates: start: 20061001
  2. ESCITALOPRAM OXALATE [Suspect]
     Dosage: 15 MG QD PO
     Route: 048
     Dates: start: 20040101
  3. ESCITALOPRAM OXALATE [Suspect]
     Dosage: 20 MG QD PO
     Route: 048
  4. ANTABUSE [Suspect]
     Dosage: 500 MG QD
     Dates: start: 20060901
  5. ANTABUSE [Suspect]
     Dosage: 100 MG QD
     Dates: start: 20060801, end: 20060901
  6. ELMENDOS (LAMOTRIGINE) [Concomitant]

REACTIONS (6)
  - AGITATION [None]
  - AMNESIA [None]
  - COGNITIVE DISORDER [None]
  - FLUID INTAKE REDUCED [None]
  - SEROTONIN SYNDROME [None]
  - SPEECH DISORDER [None]
